FAERS Safety Report 7827505-5 (Version None)
Quarter: 2011Q4

REPORT INFORMATION
  Report Type: 
  Country: None (occurrence: None)
  Receive Date: 20111020
  Receipt Date: 20110920
  Transmission Date: 20120403
  Serious: Yes (Hospitalization)
  Sender: FDA-Public Use
  Company Number: JP-ROCHE-769287

PATIENT
  Sex: Female
  Weight: 67 kg

DRUGS (10)
  1. BERAPROST SODIUM [Suspect]
     Indication: PERIPHERAL VASCULAR DISORDER
     Dosage: DRUG: DORNALIN (BERAPROST SODIUM), BEGINNING OF DOSAGE DAY: TRIAL PREINTIATION.
     Route: 048
  2. ACTEMRA [Suspect]
     Dosage: DRUG: BLINDED MRA-SC(TOCILIZUMAB)
     Route: 058
     Dates: start: 20100714, end: 20101102
  3. INDOMETHACIN [Suspect]
     Indication: RHEUMATOID ARTHRITIS
     Dosage: DRUG: INTENURSE(INDOMETACIN), FORM: TAPE,BEGINNING OF DOSAGE DAY: TRIAL PREINTIATION.
     Route: 061
  4. LANSOPRAZOLE [Suspect]
     Indication: ADVERSE DRUG REACTION
     Dosage: DRUG: TAPIZOL(LANSOPRAZOLE), BEGINNING OF DOSAGE DAY: TRIAL PREINTIATION.
     Route: 048
  5. TEPRENONE [Suspect]
     Indication: ADVERSE DRUG REACTION
     Dosage: DRUG: SELBEX (TEPRENONE), BEGINNING OF DOSAGE DAY: TRIAL PREINTIATION.
     Route: 048
  6. POVIDONE-IODINE [Suspect]
     Indication: NASOPHARYNGITIS
     Dosage: DRUG:ISODINE GARGLE(POVIDONE-IODINE), FORM:INCLUDE ASPECT, FORM:OROPHARINGEAL
     Route: 050
  7. ACTEMRA [Suspect]
     Indication: RHEUMATOID ARTHRITIS
     Dosage: DRUG: MRA-SC(TOCILIZUMAB)
     Route: 058
  8. MELOXICAM [Suspect]
     Indication: RHEUMATOID ARTHRITIS
     Dosage: DRUG: MOBIC(MELOXICAM), BEGINNING OF DOSAGE DAY: TRIAL PREINTIATION.
     Route: 048
  9. GENTAMICIN SULFATE [Suspect]
     Indication: PURULENCE
     Dosage: DRUG: GENTACIN(GENTAMICIN SULFATE), FORM: OINTMENT AND CREAM, PROPER QUANTITY SINGLE USE.
     Route: 061
  10. PLACEBO [Suspect]
     Indication: RHEUMATOID ARTHRITIS
     Dosage: DRUG: BLINDED TOCILIZUMAB(TOCILIZUMAB )
     Route: 042
     Dates: start: 20100714, end: 20101102

REACTIONS (1)
  - ARTHRALGIA [None]
